FAERS Safety Report 13699015 (Version 1)
Quarter: 2017Q2

REPORT INFORMATION
  Report Type: Spontaneous
  Country: GR (occurrence: GR)
  Receive Date: 20170628
  Receipt Date: 20170628
  Transmission Date: 20170830
  Serious: Yes (Other)
  Sender: FDA-Public Use
  Company Number: GR-MYLANLABS-2017M1038046

PATIENT

DRUGS (5)
  1. CARVEDILOL. [Suspect]
     Active Substance: CARVEDILOL
     Indication: VENTRICULAR TACHYCARDIA
  2. AMIODARONE [Suspect]
     Active Substance: AMIODARONE
     Indication: VENTRICULAR TACHYCARDIA
     Dosage: UNK
  3. CARVEDILOL. [Suspect]
     Active Substance: CARVEDILOL
     Indication: VENTRICULAR FIBRILLATION
  4. CARVEDILOL. [Suspect]
     Active Substance: CARVEDILOL
     Indication: ATRIAL FIBRILLATION
     Dosage: UNK
  5. AMIODARONE [Suspect]
     Active Substance: AMIODARONE
     Indication: VENTRICULAR FIBRILLATION

REACTIONS (1)
  - Drug ineffective [Unknown]
